FAERS Safety Report 9337920 (Version 1)
Quarter: 2013Q2

REPORT INFORMATION
  Report Type: Spontaneous
  Country: US (occurrence: US)
  Receive Date: 20130609
  Receipt Date: 20130609
  Transmission Date: 20140414
  Serious: No
  Sender: FDA-Public Use
  Company Number: US-TEVA-409902USA

PATIENT
  Sex: Female
  Weight: 61.29 kg

DRUGS (2)
  1. FENTORA [Suspect]
     Indication: PAIN
     Dates: start: 201304
  2. PERCOCET [Concomitant]
     Indication: PAIN

REACTIONS (3)
  - Pain in extremity [Not Recovered/Not Resolved]
  - Arthralgia [Not Recovered/Not Resolved]
  - Bedridden [Not Recovered/Not Resolved]
